FAERS Safety Report 5401209-0 (Version None)
Quarter: 2007Q3

REPORT INFORMATION
  Report Type: 
  Country: None (occurrence: None)
  Receive Date: 20070726
  Receipt Date: 20070716
  Transmission Date: 20080115
  Serious: Yes (Death, Life-Threatening, Hospitalization, Other)
  Sender: FDA-Public Use
  Company Number: CLOF-10604

PATIENT
  Age: 80 Year
  Sex: Male
  Weight: 131.1 kg

DRUGS (7)
  1. CYTARABINE [Suspect]
     Indication: ACUTE MYELOID LEUKAEMIA
     Dosage: 1000 MG/M2 QD X 5 IV
     Route: 042
     Dates: start: 20070702, end: 20070706
  2. CLOFARABINE (BLIND) [Suspect]
     Indication: ACUTE MYELOID LEUKAEMIA
     Dosage: 40 MG/M2 QD X 5 IV
     Route: 042
     Dates: start: 20070702, end: 20070706
  3. ALBUTEROL [Concomitant]
  4. SPIRIVA [Concomitant]
  5. NABUMETONE [Concomitant]
  6. NOVOLIN 50/50 [Concomitant]
  7. HYDROMORPHONE HCL [Concomitant]

REACTIONS (29)
  - ABDOMINAL PAIN [None]
  - ATELECTASIS [None]
  - BACTERIAL INFECTION [None]
  - BLOOD CULTURE POSITIVE [None]
  - BLOOD FIBRINOGEN INCREASED [None]
  - CHRONIC OBSTRUCTIVE PULMONARY DISEASE [None]
  - DIARRHOEA [None]
  - ENTEROCOCCAL INFECTION [None]
  - GASTROINTESTINAL HAEMORRHAGE [None]
  - GASTROINTESTINAL TELANGIECTASIA [None]
  - HAEMOTHORAX [None]
  - HEADACHE [None]
  - MICROCOCCUS INFECTION [None]
  - MUSCULOSKELETAL PAIN [None]
  - OEDEMA PERIPHERAL [None]
  - PALMAR-PLANTAR ERYTHRODYSAESTHESIA SYNDROME [None]
  - PITTING OEDEMA [None]
  - PLEURAL EFFUSION [None]
  - PNEUMONIA [None]
  - PROTHROMBIN TIME PROLONGED [None]
  - PULMONARY ALVEOLAR HAEMORRHAGE [None]
  - PULMONARY HAEMORRHAGE [None]
  - RESPIRATORY DISTRESS [None]
  - SEPSIS [None]
  - STAPHYLOCOCCAL INFECTION [None]
  - STENOTROPHOMONAS INFECTION [None]
  - TACHYCARDIA [None]
  - TACHYPNOEA [None]
  - THROMBOCYTOPENIA [None]
